FAERS Safety Report 9463588 (Version 1)
Quarter: 2013Q3

REPORT INFORMATION
  Report Type: Spontaneous
  Country: BR (occurrence: BR)
  Receive Date: 20130819
  Receipt Date: 20130819
  Transmission Date: 20140515
  Serious: Yes (Other)
  Sender: FDA-Public Use
  Company Number: BR-ACCORD-019026

PATIENT
  Age: 57 Year
  Sex: Female
  Weight: 57 kg

DRUGS (9)
  1. OMEPRAZOLE [Concomitant]
     Route: 048
     Dates: start: 20130411, end: 20130511
  2. DIPHENHYDRAMINE [Concomitant]
     Route: 042
     Dates: start: 20130412, end: 20130529
  3. DEXAMETHASONE [Concomitant]
     Route: 042
     Dates: start: 20130412, end: 20130529
  4. DEXAMETHASONE [Concomitant]
     Route: 048
     Dates: start: 20130411, end: 20130531
  5. ONDANSETRON [Concomitant]
     Route: 048
     Dates: start: 20130415, end: 20130531
  6. RANITIDINE [Concomitant]
     Route: 042
     Dates: start: 20130412, end: 20130529
  7. CARBOPLATIN [Concomitant]
     Route: 042
     Dates: start: 20130412, end: 20130529
  8. PACLITAXEL [Suspect]
     Indication: ENDOMETRIAL ADENOCARCINOMA
     Route: 042
     Dates: start: 20130412, end: 20130529
  9. ONDANSETRON [Concomitant]
     Route: 042
     Dates: start: 20130412, end: 20130529

REACTIONS (4)
  - Back pain [Recovered/Resolved]
  - Rash [Recovered/Resolved]
  - Dizziness [Recovered/Resolved]
  - Off label use [Unknown]
